FAERS Safety Report 4483385-X (Version None)
Quarter: 2004Q4

REPORT INFORMATION
  Report Type: 
  Country: None (occurrence: None)
  Receive Date: 20041020
  Receipt Date: 20041006
  Transmission Date: 20050328
  Serious: Yes (Hospitalization)
  Sender: FDA-Public Use
  Company Number: 6010947

PATIENT
  Age: 83 Year
  Sex: Female

DRUGS (9)
  1. BISOPROLOL-RATIOPHARM(TABLETS) (BISOPROLOL) [Suspect]
     Indication: ATRIAL FIBRILLATION
     Dosage: 25 MG ORAL  A FEW YEARS
     Route: 048
     Dates: end: 20040416
  2. DIGITOXIN TAB [Suspect]
     Indication: ATRIAL FIBRILLATION
     Dosage: 0.07 MG ORAL   A FEW YEARS
     Route: 048
  3. AQUAPHOR (XIPAMIDE) [Concomitant]
  4. ASS 100 HEXAL (ACETYLSALICYLIC ACID) [Concomitant]
  5. CAPTOHEXAL COMP (HYDROCHLOROTHIAZIDE, CAPTOPRIL) [Concomitant]
  6. FUROSEMIDE [Concomitant]
  7. GLIB 3,5 MG ABZ (GLIBENCLAMIDE) [Concomitant]
  8. OMEPRAZOLE [Concomitant]
  9. URIPURINOL-100 (ALLOPURINOL) [Concomitant]

REACTIONS (10)
  - ACTIVATED PARTIAL THROMBOPLASTIN TIME PROLONGED [None]
  - ATRIAL FIBRILLATION [None]
  - ATRIOVENTRICULAR BLOCK SECOND DEGREE [None]
  - BLOOD SODIUM DECREASED [None]
  - C-REACTIVE PROTEIN INCREASED [None]
  - CARDIAC VALVE DISEASE [None]
  - CIRCULATORY COLLAPSE [None]
  - DIZZINESS [None]
  - DRUG INTERACTION [None]
  - WHITE BLOOD CELL COUNT INCREASED [None]
